FAERS Safety Report 6199809-6 (Version None)
Quarter: 2009Q2

REPORT INFORMATION
  Report Type: 
  Country: None (occurrence: None)
  Receive Date: 20090522
  Receipt Date: 20090515
  Transmission Date: 20091009
  Serious: Yes (Hospitalization)
  Sender: FDA-Public Use
  Company Number: FR-PFIZER INC-2009213849

PATIENT
  Age: 58 Year

DRUGS (4)
  1. IRINOTECAN HCL [Suspect]
     Indication: COLORECTAL CANCER METASTATIC
     Dosage: 600 MG, 1X/DAY
     Route: 042
     Dates: start: 20071008
  2. FLUOROURACIL [Suspect]
     Indication: COLORECTAL CANCER METASTATIC
     Dosage: 5400 MG CONTINUOUS, 1X/DAY
     Route: 042
     Dates: start: 20071008
  3. FLUOROURACIL [Suspect]
     Dosage: 500 MG BOLUS, 1X/DAY
     Route: 040
     Dates: start: 20071008, end: 20071119
  4. CETUXIMAB [Suspect]
     Indication: COLORECTAL CANCER METASTATIC
     Dosage: 490 MG, 1X/DAY
     Route: 042
     Dates: start: 20071008

REACTIONS (4)
  - DIARRHOEA [None]
  - GENERAL PHYSICAL HEALTH DETERIORATION [None]
  - NAUSEA [None]
  - VOMITING [None]
